FAERS Safety Report 14889893 (Version 2)
Quarter: 2018Q3

REPORT INFORMATION
  Report Type: Spontaneous
  Country: IT (occurrence: IT)
  Receive Date: 20180514
  Receipt Date: 20180705
  Transmission Date: 20181010
  Serious: Yes (Other)
  Sender: FDA-Public Use
  Company Number: IT-TEVA-2018-IT-892268

PATIENT
  Age: 82 Year
  Sex: Male

DRUGS (7)
  1. CARDIOASPIRIN 100 MG COMPRESSE GASTRORESISTENTI [Concomitant]
     Active Substance: ASPIRIN
     Indication: CAROTID ARTERIOSCLEROSIS
     Dosage: 100 MILLIGRAM DAILY;
     Route: 048
  2. NORVASC 10 MG TABLETS [Concomitant]
     Dosage: 5 MILLIGRAM DAILY;
     Route: 048
  3. VENITRIN 10 MG / 24 HOURS TRANSDERMIC PATCHES [Concomitant]
     Dosage: 10 MILLIGRAM DAILY;
     Route: 062
  4. LANSOPRAZOLE. [Concomitant]
     Active Substance: LANSOPRAZOLE
     Dosage: 15 MILLIGRAM DAILY;
     Route: 048
  5. METFORMIN [Suspect]
     Active Substance: METFORMIN HYDROCHLORIDE
     Indication: DIABETES MELLITUS
     Dosage: 2 GRAM DAILY;
     Route: 048
     Dates: start: 20120504, end: 20180130
  6. LOPRESOR 100 MG COMPRESSED COATED WITH FILM [Concomitant]
     Indication: HYPERTENSION
     Dosage: 100 MILLIGRAM DAILY;
     Route: 048
  7. TOTALIP 20 MG COMPRESSED COATED WITH FILM [Concomitant]
     Dosage: 20 MILLIGRAM DAILY;
     Route: 048

REACTIONS (2)
  - Blood creatinine increased [Unknown]
  - Azotaemia [Unknown]

NARRATIVE: CASE EVENT DATE: 20180130
